FAERS Safety Report 4383582-8 (Version None)
Quarter: 2004Q2

REPORT INFORMATION
  Report Type: 
  Country: None (occurrence: None)
  Receive Date: 20040618
  Receipt Date: 20040604
  Transmission Date: 20050107
  Serious: Yes (Hospitalization)
  Sender: FDA-Public Use
  Company Number: 2217-8

PATIENT
  Age: 65 Year
  Sex: Male
  Weight: 117.028 kg

DRUGS (4)
  1. AZMACORT [Suspect]
     Indication: ASTHMA
     Dosage: 3 TID PUFFS
  2. ATROVENT [Concomitant]
  3. ALBUTEROL [Concomitant]
  4. BLOOD PRESSURE PILL [Concomitant]

REACTIONS (4)
  - BLOOD PRESSURE INCREASED [None]
  - DYSPNOEA [None]
  - EPISTAXIS [None]
  - HEART RATE INCREASED [None]
